FAERS Safety Report 4318954-0 (Version None)
Quarter: 2004Q1

REPORT INFORMATION
  Report Type: 
  Country: None (occurrence: None)
  Receive Date: 20040315
  Receipt Date: 20040309
  Transmission Date: 20041129
  Serious: Yes (Hospitalization)
  Sender: FDA-Public Use
  Company Number: SEWYE628409MAR04

PATIENT
  Age: 27 Year
  Sex: Female

DRUGS (5)
  1. EFFEXOR [Suspect]
     Indication: DEPRESSION
     Dosage: 225 MG 1X PER 1 DAY; ORAL
     Route: 048
     Dates: start: 20020825
  2. CLONAZEPAM [Concomitant]
  3. TRUXAL (CHLORPROTHIXINE HYDROCHLORIDE) [Concomitant]
  4. ZOLPIDEM TARTRATE [Concomitant]
  5. CIPRAMIL (CITALOPRAM HYDROBROMIDE) [Concomitant]

REACTIONS (2)
  - DIARRHOEA [None]
  - PANCREATIC INSUFFICIENCY [None]
